FAERS Safety Report 11847555 (Version 1)
Quarter: 2015Q4

REPORT INFORMATION
  Report Type: Spontaneous
  Country: US (occurrence: US)
  Receive Date: 20151217
  Receipt Date: 20151217
  Transmission Date: 20160305
  Serious: Yes (Hospitalization, Other)
  Sender: FDA-Public Use
  Company Number: US-TAKEDA-2015MPI008340

PATIENT
  Age: 85 Year
  Sex: Male

DRUGS (4)
  1. VELCADE [Suspect]
     Active Substance: BORTEZOMIB
     Indication: PLASMA CELL MYELOMA
     Dosage: UNK
     Route: 058
     Dates: start: 20150717, end: 20150727
  2. LASIX [Concomitant]
     Active Substance: FUROSEMIDE
     Indication: PRODUCT USED FOR UNKNOWN INDICATION
     Dosage: UNK
     Route: 065
  3. LENALIDOMIDE [Suspect]
     Active Substance: LENALIDOMIDE
     Indication: PLASMA CELL MYELOMA
     Dosage: 25 MG, UNK
     Route: 048
     Dates: start: 20150720, end: 20150804
  4. DEXAMETHASONE. [Concomitant]
     Active Substance: DEXAMETHASONE
     Indication: PLASMA CELL MYELOMA
     Dosage: UNK
     Route: 065

REACTIONS (7)
  - Pancytopenia [Not Recovered/Not Resolved]
  - Deep vein thrombosis [Recovering/Resolving]
  - White blood cell count decreased [Recovered/Resolved]
  - Rash pruritic [Recovering/Resolving]
  - Urinary tract infection [Recovered/Resolved]
  - Transient ischaemic attack [Recovered/Resolved]
  - Acute kidney injury [Unknown]

NARRATIVE: CASE EVENT DATE: 20150730
